FAERS Safety Report 5338996-6 (Version None)
Quarter: 2007Q2

REPORT INFORMATION
  Report Type: 
  Country: None (occurrence: None)
  Receive Date: 20070530
  Receipt Date: 20070518
  Transmission Date: 20071010
  Serious: Yes (Hospitalization)
  Sender: FDA-Public Use
  Company Number: US-KINGPHARMUSA00001-K200700616

PATIENT

DRUGS (1)
  1. CYTOMEL [Suspect]

REACTIONS (4)
  - ARRHYTHMIA [None]
  - HYPERHIDROSIS [None]
  - NAUSEA [None]
  - PAIN IN JAW [None]
